FAERS Safety Report 18256360 (Version 1)
Quarter: 2020Q3

REPORT INFORMATION
  Report Type: Spontaneous
  Country: US (occurrence: US)
  Receive Date: 20200910
  Receipt Date: 20200910
  Transmission Date: 20201103
  Serious: Yes (Hospitalization)
  Sender: FDA-Public Use
  Company Number: None

PATIENT
  Age: 27 Year
  Sex: Female

DRUGS (13)
  1. DICLOFENAC [Concomitant]
     Active Substance: DICLOFENAC
  2. CLOBETASOL [Concomitant]
     Active Substance: CLOBETASOL
  3. TALTZ [Suspect]
     Active Substance: IXEKIZUMAB
     Indication: PSORIASIS
     Dosage: 1 PEN QQ4WK SQ
     Route: 058
     Dates: start: 20190222
  4. ASPIRIN. [Concomitant]
     Active Substance: ASPIRIN
  5. OXYCODONE [Concomitant]
     Active Substance: OXYCODONE
  6. PROMETH/COD [Concomitant]
  7. CLINDAMYCIN. [Concomitant]
     Active Substance: CLINDAMYCIN
  8. NABUMETONE. [Concomitant]
     Active Substance: NABUMETONE
  9. GABAPENTIN. [Concomitant]
     Active Substance: GABAPENTIN
  10. DIAZEPAM. [Concomitant]
     Active Substance: DIAZEPAM
  11. DOXYCYCL HYC [Concomitant]
  12. HYDROCO/APAP [Concomitant]
     Active Substance: ACETAMINOPHEN\HYDROCODONE
  13. ONDANSETRON [Concomitant]
     Active Substance: ONDANSETRON

REACTIONS (1)
  - Hip surgery [None]

NARRATIVE: CASE EVENT DATE: 20200909
